FAERS Safety Report 22154419 (Version 10)
Quarter: 2023Q2

REPORT INFORMATION
  Report Type: Report from Study
  Country: US (occurrence: None)
  Receive Date: 20230330
  Receipt Date: 20230627
  Transmission Date: 20230722
  Serious: Yes (Hospitalization)
  Sender: FDA-Public Use
  Company Number: US-ROCHE-3317076

PATIENT
  Age: 72 Year
  Sex: Female

DRUGS (2)
  1. ATEZOLIZUMAB [Suspect]
     Active Substance: ATEZOLIZUMAB
     Indication: Endometrial cancer
     Dosage: LAST DOSE PRIOR TO SAE/AESI: 28/DEC/2022. FREQUNCY AS PER PROTOCOL: 1680 MG ON DAY 1 OF EACH 28-DAY
     Route: 041
     Dates: start: 20221228
  2. BEVACIZUMAB [Suspect]
     Active Substance: BEVACIZUMAB
     Indication: Endometrial cancer
     Dosage: FREQUENCY AS PER PROTOCOL : EVERY 2 WEEKS OF THE 28-DAY CYCLE. LAST DOSE PRIOR TO SAE/AESI: 10/JAN/
     Route: 042
     Dates: start: 20221228

REACTIONS (3)
  - Ascites [Recovered/Resolved]
  - Pleural effusion [Recovered/Resolved]
  - Ascites [Recovered/Resolved]

NARRATIVE: CASE EVENT DATE: 20230117
